FAERS Safety Report 10307313 (Version 1)
Quarter: 2014Q3

REPORT INFORMATION
  Report Type: Spontaneous
  Country: CA (occurrence: CA)
  Receive Date: 20140716
  Receipt Date: 20140716
  Transmission Date: 20150326
  Serious: Yes (Other)
  Sender: FDA-Public Use
  Company Number: CA-ROCHE-1435352

PATIENT
  Age: 59 Year
  Sex: Female

DRUGS (3)
  1. LUCENTIS [Suspect]
     Active Substance: RANIBIZUMAB
     Indication: PRODUCT USED FOR UNKNOWN INDICATION
     Route: 031
  2. ATIVAN [Concomitant]
     Active Substance: LORAZEPAM
  3. AVASTIN [Suspect]
     Active Substance: BEVACIZUMAB
     Indication: PRODUCT USED FOR UNKNOWN INDICATION
     Route: 065

REACTIONS (9)
  - Pharyngeal oedema [Recovered/Resolved]
  - Condition aggravated [Recovered/Resolved]
  - Cough [Recovered/Resolved]
  - Dry throat [Recovered/Resolved]
  - Photopsia [Recovered/Resolved]
  - Throat tightness [Recovered/Resolved]
  - Headache [Recovered/Resolved]
  - Age-related macular degeneration [Recovered/Resolved]
  - Dysphonia [Recovered/Resolved]
